FAERS Safety Report 18068096 (Version 3)
Quarter: 2020Q3

REPORT INFORMATION
  Report Type: Spontaneous
  Country: US (occurrence: US)
  Receive Date: 20200724
  Receipt Date: 20200806
  Transmission Date: 20201103
  Serious: No
  Sender: FDA-Public Use
  Company Number: US-PFIZER INC-2020280718

PATIENT
  Sex: Female

DRUGS (3)
  1. GENOTROPIN MQ [Suspect]
     Active Substance: SOMATROPIN
     Dosage: 0.4 MG
  2. GENOTROPIN MQ [Suspect]
     Active Substance: SOMATROPIN
     Dosage: 2 X 0.2 MG MQ DOSES
  3. GENOTROPIN MQ [Suspect]
     Active Substance: SOMATROPIN
     Dosage: 0.2 MG, 2X/DAY

REACTIONS (2)
  - Fatigue [Unknown]
  - Product complaint [Unknown]
